FAERS Safety Report 4681545-6 (Version None)
Quarter: 2005Q2

REPORT INFORMATION
  Report Type: 
  Country: None (occurrence: None)
  Receive Date: 20050603
  Receipt Date: 20050520
  Transmission Date: 20051028
  Serious: Yes (Other)
  Sender: FDA-Public Use
  Company Number: US-GLAXOSMITHKLINE-A0559538A

PATIENT
  Age: 61 Year
  Sex: Female
  Weight: 70.5 kg

DRUGS (6)
  1. NICODERM CQ [Suspect]
     Dosage: 21MG PER DAY
     Route: 062
     Dates: start: 20050414, end: 20050501
  2. TOPAMAX [Concomitant]
     Dosage: 100MG PER DAY
  3. LEXAPRO [Concomitant]
     Dosage: 25MG PER DAY
  4. LISINOPRIL [Concomitant]
     Dosage: 25MG PER DAY
  5. NORVASC [Concomitant]
     Dosage: 10MG PER DAY
  6. PREMARIN [Concomitant]
     Dosage: .9MG PER DAY

REACTIONS (8)
  - ABDOMINAL PAIN UPPER [None]
  - DIZZINESS [None]
  - FAECES DISCOLOURED [None]
  - GASTRIC ULCER [None]
  - GASTRIC ULCER HAEMORRHAGE [None]
  - HYPERHIDROSIS [None]
  - INTENTIONAL MISUSE [None]
  - SOMNOLENCE [None]
